FAERS Safety Report 5679284-8 (Version None)
Quarter: 2008Q1

REPORT INFORMATION
  Report Type: 
  Country: None (occurrence: None)
  Receive Date: 20080325
  Receipt Date: 20080314
  Transmission Date: 20080703
  Serious: Yes (Hospitalization)
  Sender: FDA-Public Use
  Company Number: US-JNJFOC-20080303991

PATIENT
  Sex: Male
  Weight: 30.39 kg

DRUGS (5)
  1. RISPERDAL [Suspect]
  2. RISPERDAL [Suspect]
     Indication: BIPOLAR DISORDER
  3. INVEGA [Concomitant]
  4. FOCALIN XR [Concomitant]
  5. TENEX [Concomitant]

REACTIONS (3)
  - AGGRESSION [None]
  - TREMOR [None]
  - WEIGHT INCREASED [None]
